FAERS Safety Report 8960327 (Version 1)
Quarter: 2012Q4

REPORT INFORMATION
  Report Type: 
  Country: NL (occurrence: NL)
  Receive Date: 20121211
  Receipt Date: 20121211
  Transmission Date: 20130627
  Serious: Yes (Death, Hospitalization)
  Sender: FDA-Public Use
  Company Number: NL-TEVA-374039ISR

PATIENT
  Age: 53 Year
  Sex: Male

DRUGS (3)
  1. VALPROIC ACID [Suspect]
     Indication: EPILEPSY
     Dosage: 2400 Milligram Daily;
     Route: 065
  2. INSULIN [Concomitant]
     Indication: TYPE 2 DIABETES MELLITUS
     Route: 058
  3. ESOMEPRAZOLE [Concomitant]
     Route: 065

REACTIONS (2)
  - Acute hepatic failure [Fatal]
  - Multi-organ failure [Fatal]
